FAERS Safety Report 9586849 (Version 1)
Quarter: 2013Q4

REPORT INFORMATION
  Report Type: Spontaneous
  Country: US (occurrence: US)
  Receive Date: 20131003
  Receipt Date: 20131003
  Transmission Date: 20140711
  Serious: No
  Sender: FDA-Public Use
  Company Number: US-BAYER-2013-119142

PATIENT
  Age: 16 Year
  Sex: Female

DRUGS (2)
  1. NATAZIA [Suspect]
     Indication: CONTRACEPTION
     Dosage: UNK
     Route: 048
     Dates: start: 201211
  2. NATAZIA [Suspect]
     Indication: MENORRHAGIA

REACTIONS (1)
  - Menstruation delayed [Not Recovered/Not Resolved]
